FAERS Safety Report 15799547 (Version 1)
Quarter: 2019Q1

REPORT INFORMATION
  Report Type: Spontaneous
  Country: GB (occurrence: GB)
  Receive Date: 20190108
  Receipt Date: 20190108
  Transmission Date: 20190417
  Serious: Yes (Other)
  Sender: FDA-Public Use
  Company Number: GB-ACCORD-101126

PATIENT
  Age: 60 Year
  Sex: Male
  Weight: 66 kg

DRUGS (2)
  1. AMITRIPTYLINE [Suspect]
     Active Substance: AMITRIPTYLINE
     Indication: INSOMNIA
     Dosage: ONE HOUR BEFORE BED. REDUCED DOSE OVER 4 DAYS BEFORE STOPPING.
     Route: 048
     Dates: start: 20171204, end: 20180318
  2. MANGANESE/MANGANESE CHELATE/MANGANESE CHLORIDE/MANGANESE GLUCONATE/MANGANESE SULFATE [Concomitant]

REACTIONS (10)
  - Arthralgia [Recovered/Resolved]
  - Off label use [Unknown]
  - Muscular weakness [Recovered/Resolved]
  - Myalgia [Recovered/Resolved]
  - Micturition urgency [Recovered/Resolved]
  - Blood urine present [Recovered/Resolved]
  - Urinary incontinence [Recovered/Resolved]
  - Pollakiuria [Not Recovered/Not Resolved]
  - Dysuria [Recovered/Resolved]
  - Bladder pain [Recovered/Resolved]

NARRATIVE: CASE EVENT DATE: 20180301
